FAERS Safety Report 4764324-0 (Version None)
Quarter: 2005Q3

REPORT INFORMATION
  Report Type: 
  Country: None (occurrence: None)
  Receive Date: 20050907
  Receipt Date: 20050830
  Transmission Date: 20060218
  Serious: Yes (Life-Threatening, Hospitalization)
  Sender: FDA-Public Use
  Company Number: 200512273GDS

PATIENT
  Age: 40 Year
  Sex: Male

DRUGS (2)
  1. ASPIRIN [Suspect]
     Indication: CEREBRAL INFARCTION
     Dosage: 100 MG, TOTAL DAILY, ORAL
     Route: 048
     Dates: end: 20050316
  2. WARFARIN [Suspect]
     Indication: CEREBRAL INFARCTION
     Dosage: 4.5 MG, ORAL
     Route: 048
     Dates: end: 20050316

REACTIONS (9)
  - ANAEMIA [None]
  - BACK PAIN [None]
  - DRUG EFFECT INCREASED [None]
  - EPILEPSY [None]
  - EXTRAVASATION [None]
  - FALL [None]
  - OVERDOSE [None]
  - RETROPERITONEAL HAEMATOMA [None]
  - RETROPERITONEAL HAEMORRHAGE [None]
